FAERS Safety Report 9619125 (Version 2)
Quarter: 2013Q4

REPORT INFORMATION
  Report Type: Spontaneous
  Country: CL (occurrence: CL)
  Receive Date: 20131014
  Receipt Date: 20131024
  Transmission Date: 20140711
  Serious: No
  Sender: FDA-Public Use
  Company Number: CL-AMGEN-CHLSP2013071668

PATIENT
  Age: 13 Year
  Sex: Male

DRUGS (7)
  1. ENBREL [Suspect]
     Indication: JUVENILE IDIOPATHIC ARTHRITIS
     Dosage: 35 MG, WEEKLY
     Route: 058
     Dates: start: 201302
  2. METHOTREXATE SODIUM [Concomitant]
     Dosage: UNK
  3. FOLIC ACID [Concomitant]
     Dosage: UNK
  4. MELOXICAM [Concomitant]
     Dosage: UNK
  5. CALCIUM [Concomitant]
     Dosage: UNK
  6. OMEPRAZOL                          /00661201/ [Concomitant]
     Dosage: UNK
  7. DEGRALER [Concomitant]
     Dosage: UNK

REACTIONS (2)
  - Bronchitis [Recovering/Resolving]
  - Sinusitis [Recovering/Resolving]
